FAERS Safety Report 6253466-9 (Version None)
Quarter: 2009Q3

REPORT INFORMATION
  Report Type: 
  Country: None (occurrence: None)
  Receive Date: 20090701
  Receipt Date: 20090615
  Transmission Date: 20100115
  Serious: No
  Sender: FDA-Public Use
  Company Number: US-B.I. PHARMACEUTICALS,INC./RIDGEFIELD-2009-BP-07010BP

PATIENT
  Sex: Female
  Weight: 76.66 kg

DRUGS (3)
  1. AGGRENOX [Suspect]
     Indication: TRANSIENT ISCHAEMIC ATTACK
     Dates: start: 20090401, end: 20090403
  2. TOPROL-XL [Concomitant]
     Indication: ATRIAL FIBRILLATION
     Dosage: 25 MG
  3. PRILOSEC [Concomitant]
     Dosage: 80 MG

REACTIONS (4)
  - AMNESIA [None]
  - CONFUSIONAL STATE [None]
  - HEADACHE [None]
  - NAUSEA [None]
